FAERS Safety Report 5651773-1 (Version None)
Quarter: 2008Q1

REPORT INFORMATION
  Report Type: 
  Country: None (occurrence: None)
  Receive Date: 20080131
  Receipt Date: 20071218
  Transmission Date: 20080703
  Serious: No
  Sender: FDA-Public Use
  Company Number: US200711001944

PATIENT
  Age: 66 Year
  Sex: Female
  Weight: 68 kg

DRUGS (18)
  1. BYETTA [Suspect]
     Indication: TYPE 2 DIABETES MELLITUS
     Dosage: 5 UG, 2/D, SUBCUTANEOUS ; 10 UG, 2/D, SUBCUTANEOUS ; 10 UG, 2/D, SUBCUTANEOUS
     Route: 058
     Dates: start: 20070801, end: 20071003
  2. BYETTA [Suspect]
     Indication: TYPE 2 DIABETES MELLITUS
     Dosage: 5 UG, 2/D, SUBCUTANEOUS ; 10 UG, 2/D, SUBCUTANEOUS ; 10 UG, 2/D, SUBCUTANEOUS
     Route: 058
     Dates: start: 20071004, end: 20071101
  3. BYETTA [Suspect]
     Indication: TYPE 2 DIABETES MELLITUS
     Dosage: 5 UG, 2/D, SUBCUTANEOUS ; 10 UG, 2/D, SUBCUTANEOUS ; 10 UG, 2/D, SUBCUTANEOUS
     Route: 058
     Dates: start: 20071107, end: 20071201
  4. BYETTA [Suspect]
     Indication: TYPE 2 DIABETES MELLITUS
     Dosage: 5 UG, 2/D, SUBCUTANEOUS ; 10 UG, 2/D, SUBCUTANEOUS ; 10 UG, 2/D, SUBCUTANEOUS
     Route: 058
     Dates: start: 20071208
  5. BYETTA [Suspect]
  6. METFORMIN HCL [Concomitant]
  7. LEVOXYL [Concomitant]
  8. VITAMIN B12 [Concomitant]
  9. FERROUS SULFATE TAB [Concomitant]
  10. VITAMIN D [Concomitant]
  11. GINKO BILOBA (GINKGO BILOBA) [Concomitant]
  12. COENZYME Q10 [Concomitant]
  13. REQUIP [Concomitant]
  14. NEURONTIN /USA/ (GABAPENTIN) [Concomitant]
  15. OXYCODONE HCL [Concomitant]
  16. PAXIL [Concomitant]
  17. FOLIC ACID [Concomitant]
  18. IMODIUM [Concomitant]

REACTIONS (4)
  - HEADACHE [None]
  - INJECTION SITE ERYTHEMA [None]
  - INJECTION SITE SWELLING [None]
  - MIGRAINE [None]
